FAERS Safety Report 7266476-X (Version None)
Quarter: 2011Q1

REPORT INFORMATION
  Report Type: 
  Country: None (occurrence: None)
  Receive Date: 20110131
  Receipt Date: 20110125
  Transmission Date: 20110831
  Serious: Yes (Other)
  Sender: FDA-Public Use
  Company Number: CO-PFIZER INC-2011018513

PATIENT
  Age: 69 Year
  Sex: Male

DRUGS (3)
  1. GLUCOVANCE [Concomitant]
     Dosage: [500 , 5], UNK
     Route: 048
  2. ENBREL [Suspect]
     Indication: RHEUMATOID ARTHRITIS
     Dosage: 50 MG, WEEKLY
     Route: 058
     Dates: start: 20030101
  3. MEDROL [Suspect]
     Indication: RHEUMATOID ARTHRITIS
     Dosage: 2 MG, 1X/DAY
     Route: 048
     Dates: start: 20030101

REACTIONS (3)
  - DIABETES MELLITUS [None]
  - SINUSITIS [None]
  - IMMUNE SYSTEM DISORDER [None]
